FAERS Safety Report 14893008 (Version 1)
Quarter: 2018Q2

REPORT INFORMATION
  Report Type: Report from Study
  Country: US (occurrence: US)
  Receive Date: 20180514
  Receipt Date: 20180514
  Transmission Date: 20180711
  Serious: Yes (Other)
  Sender: FDA-Public Use
  Company Number: US-JAZZ-2018-US-003308

PATIENT
  Sex: Female

DRUGS (37)
  1. RESTASIS [Concomitant]
     Active Substance: CYCLOSPORINE
  2. HYDROCODONE/PARACETAMOL [Concomitant]
     Active Substance: ACETAMINOPHEN\HYDROCODONE BITARTRATE
  3. TYLENOL EXTRA STRENGTH [Concomitant]
     Active Substance: ACETAMINOPHEN
  4. VITAMIN D3 [Concomitant]
     Active Substance: CHOLECALCIFEROL
  5. CALCIUM ASCORBATE [Concomitant]
     Active Substance: CALCIUM ASCORBATE
  6. CYCLOBENZAPRINE. [Concomitant]
     Active Substance: CYCLOBENZAPRINE
  7. FORTEO [Concomitant]
     Active Substance: TERIPARATIDE
  8. GAMMAGARD [Concomitant]
     Active Substance: HUMAN IMMUNOGLOBULIN G
  9. ASCORBIC ACID. [Concomitant]
     Active Substance: ASCORBIC ACID
  10. PROAIR HFA [Concomitant]
     Active Substance: ALBUTEROL SULFATE
  11. AMINO ACID [Concomitant]
     Active Substance: AMINO ACIDS
  12. BENADRYL A [Concomitant]
     Active Substance: DIPHENHYDRAMINE HYDROCHLORIDE
  13. BORON CITRATE [Concomitant]
  14. NEUPRO [Concomitant]
     Active Substance: ROTIGOTINE
  15. MOMETASONE FUROATE. [Concomitant]
     Active Substance: MOMETASONE FUROATE
  16. XYREM [Suspect]
     Active Substance: SODIUM OXYBATE
     Indication: CATAPLEXY
     Dosage: 3 G, BID
     Route: 048
     Dates: start: 201801
  17. PATADAY [Concomitant]
     Active Substance: OLOPATADINE HYDROCHLORIDE
  18. CARMELLOSE [Concomitant]
  19. DOXEPIN [Concomitant]
     Active Substance: DOXEPIN
  20. IBUPROFEN. [Concomitant]
     Active Substance: IBUPROFEN
  21. NUVIGIL [Concomitant]
     Active Substance: ARMODAFINIL
  22. XYREM [Suspect]
     Active Substance: SODIUM OXYBATE
     Indication: NARCOLEPSY
     Dosage: 3 G, BID
     Route: 048
     Dates: start: 201412, end: 201603
  23. CELEBREX [Concomitant]
     Active Substance: CELECOXIB
  24. GABAPENTIN. [Concomitant]
     Active Substance: GABAPENTIN
  25. LEVOTHYROXINE. [Concomitant]
     Active Substance: LEVOTHYROXINE
  26. VITAMIN B COMPLEX [Concomitant]
     Active Substance: CYANOCOBALAMIN\DEXPANTHENOL\NIACINAMIDE\PYRIDOXINE HYDROCHLORIDE\RIBOFLAVIN 5^-PHOSPHATE SODIUM\THIAMINE HYDROCHLORIDE\VITAMIN B COMPLEX
  27. ZOLPIDEM TARTATE [Concomitant]
     Active Substance: ZOLPIDEM TARTRATE
  28. ALBUTEROL SULFATE. [Concomitant]
     Active Substance: ALBUTEROL SULFATE
  29. COPPER CHLORIDE [Concomitant]
     Active Substance: CUPRIC CHLORIDE
  30. ZINC ACETATE [Concomitant]
     Active Substance: ZINC ACETATE
  31. BACLOFEN. [Concomitant]
     Active Substance: BACLOFEN
  32. ESOMEPRAZOLE MAGNESIUM. [Concomitant]
     Active Substance: ESOMEPRAZOLE MAGNESIUM
  33. FLAXSEED [Concomitant]
     Active Substance: FLAX SEED
  34. DULOXETINE HCL [Concomitant]
     Active Substance: DULOXETINE HYDROCHLORIDE
  35. LYRICA [Concomitant]
     Active Substance: PREGABALIN
  36. TRAMADOL HCL [Concomitant]
     Active Substance: TRAMADOL HYDROCHLORIDE
  37. XANAX [Concomitant]
     Active Substance: ALPRAZOLAM

REACTIONS (5)
  - Therapeutic response decreased [Not Recovered/Not Resolved]
  - Condition aggravated [Not Recovered/Not Resolved]
  - Demyelination [Not Recovered/Not Resolved]
  - Neuropathy peripheral [Not Recovered/Not Resolved]
  - Sjogren^s syndrome [Not Recovered/Not Resolved]
